FAERS Safety Report 14948756 (Version 1)
Quarter: 2018Q2

REPORT INFORMATION
  Report Type: Spontaneous
  Country: MX (occurrence: MX)
  Receive Date: 20180529
  Receipt Date: 20180529
  Transmission Date: 20180711
  Serious: Yes (Other)
  Sender: FDA-Public Use
  Company Number: MX-PFIZER INC-2018218665

PATIENT
  Sex: Female

DRUGS (1)
  1. TYGACIL [Suspect]
     Active Substance: TIGECYCLINE
     Indication: ABDOMINAL OPERATION
     Dosage: UNK

REACTIONS (3)
  - Pyrexia [Unknown]
  - Uterine abscess [Unknown]
  - Drug ineffective [Unknown]
